FAERS Safety Report 20394520 (Version 4)
Quarter: 2022Q3

REPORT INFORMATION
  Report Type: Spontaneous
  Country: JP (occurrence: JP)
  Receive Date: 20220129
  Receipt Date: 20220713
  Transmission Date: 20221027
  Serious: Yes (Death, Life-Threatening, Hospitalization, Other)
  Sender: FDA-Public Use
  Company Number: JP-NOVARTISPH-NVSC2022JP003078

PATIENT
  Age: 82 Year
  Sex: Female
  Weight: 39.3 kg

DRUGS (3)
  1. LUTATHERA [Suspect]
     Active Substance: LUTETIUM OXODOTREOTIDE LU-177
     Indication: Neuroendocrine tumour
     Dosage: 7.4 GBQ, QD
     Route: 042
     Dates: start: 20211110, end: 20211110
  2. ARGININE\LYSINE [Suspect]
     Active Substance: ARGININE\LYSINE
     Indication: Neuroendocrine tumour
     Dosage: 1000 ML, QD
     Route: 042
     Dates: start: 20211110, end: 20211110
  3. ALOXI [Concomitant]
     Active Substance: PALONOSETRON HYDROCHLORIDE
     Indication: Prophylaxis of nausea and vomiting
     Dosage: UNK
     Route: 042

REACTIONS (3)
  - Metastatic neoplasm [Fatal]
  - Myelosuppression [Fatal]
  - Disease progression [Unknown]

NARRATIVE: CASE EVENT DATE: 20211207
